FAERS Safety Report 4698864-X (Version None)
Quarter: 2005Q2

REPORT INFORMATION
  Report Type: 
  Country: None (occurrence: None)
  Receive Date: 20050623
  Receipt Date: 20050603
  Transmission Date: 20051028
  Serious: Yes (Other)
  Sender: FDA-Public Use
  Company Number: 211401

PATIENT
  Age: 71 Year
  Sex: Male
  Weight: 53 kg

DRUGS (10)
  1. RITUXAN [Suspect]
     Indication: NON-HODGKIN'S LYMPHOMA
     Dosage: 375 MG/M2, QD, INTRAVENOUS
     Route: 042
     Dates: start: 20040513, end: 20040831
  2. VANCOMYCIN HYDROCHLORIDE [Suspect]
     Indication: SEPSIS
  3. DOXORUBICIN HYDROCHLORIDE [Concomitant]
  4. VINCRISTINE [Concomitant]
  5. PREDNISONE [Concomitant]
  6. BLOOD TRANSFUSIONS (BLOOD, WHOLE) [Concomitant]
  7. INSULIN HUMAN (INSULIN HUMAN) [Concomitant]
  8. PRIMPERAN ELIXIR [Concomitant]
  9. METHYCOBAL (MECOBALAMIN) [Concomitant]
  10. CYCLOPHOSPHAMIDE [Concomitant]

REACTIONS (1)
  - DEAFNESS UNILATERAL [None]
